FAERS Safety Report 12781788 (Version 2)
Quarter: 2016Q4

REPORT INFORMATION
  Report Type: Report from Study
  Country: US (occurrence: US)
  Receive Date: 20160926
  Receipt Date: 20161026
  Transmission Date: 20170207
  Serious: Yes (Death, Hospitalization)
  Sender: FDA-Public Use
  Company Number: US-ACTELION-A-US2016-133227

PATIENT
  Age: 80 Year
  Sex: Male
  Weight: 68.27 kg

DRUGS (4)
  1. UPTRAVI [Suspect]
     Active Substance: SELEXIPAG
     Dosage: 1600 MCG, BID
     Route: 048
  2. UPTRAVI [Suspect]
     Active Substance: SELEXIPAG
     Indication: PULMONARY HYPERTENSION
     Dosage: 200 MCG, BID
     Route: 048
     Dates: start: 20160301
  3. OXYGEN. [Concomitant]
     Active Substance: OXYGEN
     Dosage: 4L/M
  4. LETAIRIS [Concomitant]
     Active Substance: AMBRISENTAN

REACTIONS (5)
  - Atrial fibrillation [Recovered/Resolved]
  - Condition aggravated [Fatal]
  - Dyspnoea [Unknown]
  - Pulmonary arterial hypertension [Fatal]
  - Chest pain [Unknown]

NARRATIVE: CASE EVENT DATE: 20160828
